FAERS Safety Report 12320216 (Version 1)
Quarter: 2016Q2

REPORT INFORMATION
  Report Type: Spontaneous
  Country: US (occurrence: US)
  Receive Date: 20160501
  Receipt Date: 20160501
  Transmission Date: 20160815
  Serious: Yes (Other)
  Sender: FDA-Public Use
  Company Number: US-DEXPHARM-20160748

PATIENT
  Age: 51 Year
  Sex: Male
  Weight: 86.17 kg

DRUGS (4)
  1. OMEPRAZOLE DELAYED RELEASE [Suspect]
     Active Substance: OMEPRAZOLE
     Indication: GASTRIC ULCER
     Dosage: 20 TO 40  MG, AS NEEDED
     Route: 048
  2. JUICE PLUS [Concomitant]
     Active Substance: DIETARY SUPPLEMENT
     Indication: ROUTINE HEALTH MAINTENANCE
     Dosage: UNK
     Route: 065
  3. OMEGA 3 [Concomitant]
     Active Substance: OMEGA-3 FATTY ACIDS
     Indication: ROUTINE HEALTH MAINTENANCE
     Dosage: UNK
     Route: 065
  4. VITMAIN D3 [Concomitant]
     Indication: ROUTINE HEALTH MAINTENANCE
     Dosage: UNK
     Route: 065

REACTIONS (3)
  - Chromaturia [Not Recovered/Not Resolved]
  - Scleral discolouration [Not Recovered/Not Resolved]
  - Hepatitis [Not Recovered/Not Resolved]

NARRATIVE: CASE EVENT DATE: 20160416
